FAERS Safety Report 8487508 (Version 6)
Quarter: 2013Q3

REPORT INFORMATION
  Report Type: Spontaneous
  Country: US (occurrence: US)
  Receive Date: 20120402
  Receipt Date: 20130711
  Transmission Date: 20140515
  Serious: Yes (Hospitalization, Disabling, Other)
  Sender: FDA-Public Use
  Company Number: US-MSD JAPAN-1203USA03304

PATIENT
  Sex: Female
  Weight: 64.86 kg

DRUGS (4)
  1. FOSAMAX [Suspect]
     Indication: OSTEOPOROSIS
     Dosage: 70 MG, QW
     Route: 048
     Dates: start: 2000
  2. FOSAMAX [Suspect]
     Indication: OSTEOPENIA
  3. FOSAMAX PLUS D [Suspect]
     Indication: OSTEOPOROSIS
     Dosage: 70 MG, QW
     Route: 048
     Dates: start: 200504, end: 2008
  4. FOSAMAX [Suspect]
     Indication: OSTEOPOROSIS
     Dosage: 70 MG, QW
     Route: 048
     Dates: start: 200802, end: 2008

REACTIONS (30)
  - Femur fracture [Recovering/Resolving]
  - Intramedullary rod insertion [Recovering/Resolving]
  - Femur fracture [Unknown]
  - Surgery [Unknown]
  - Osteoporosis [Unknown]
  - Stress fracture [Unknown]
  - Femur fracture [Unknown]
  - Bone density decreased [Unknown]
  - Fall [Unknown]
  - Hip fracture [Unknown]
  - Eyelid ptosis [Unknown]
  - Onychomycosis [Recovering/Resolving]
  - Arthritis [Unknown]
  - Hypercholesterolaemia [Unknown]
  - Breast pain [Unknown]
  - Type 2 diabetes mellitus [Unknown]
  - Hypertonic bladder [Unknown]
  - Cardiac murmur [Unknown]
  - Ataxia [Unknown]
  - Nervous system disorder [Unknown]
  - Dysphonia [Unknown]
  - Facial asymmetry [Unknown]
  - Sinusitis [Unknown]
  - Cerebral small vessel ischaemic disease [Unknown]
  - Spinal osteoarthritis [Unknown]
  - Myopathy [Unknown]
  - Anaemia postoperative [Recovering/Resolving]
  - Muscular weakness [Unknown]
  - Constipation [Unknown]
  - Rash [Unknown]
